FAERS Safety Report 18870432 (Version 3)
Quarter: 2023Q2

REPORT INFORMATION
  Report Type: Spontaneous
  Country: US (occurrence: US)
  Receive Date: 20210209
  Receipt Date: 20230426
  Transmission Date: 20230722
  Serious: Yes (Other)
  Sender: FDA-Public Use
  Company Number: US-GILEAD-2021-0515609

PATIENT
  Age: 41 Year
  Sex: Female
  Weight: 91.156 kg

DRUGS (44)
  1. VIREAD [Suspect]
     Active Substance: TENOFOVIR DISOPROXIL FUMARATE
     Indication: HIV infection
     Dosage: UNK
     Route: 048
     Dates: start: 2006
  2. VIREAD [Suspect]
     Active Substance: TENOFOVIR DISOPROXIL FUMARATE
     Dosage: UNK
     Route: 048
     Dates: start: 20011026, end: 2009
  3. TRUVADA [Suspect]
     Active Substance: EMTRICITABINE\TENOFOVIR DISOPROXIL FUMARATE
     Indication: HIV infection
     Dosage: UNK
     Route: 048
     Dates: start: 2006
  4. TRUVADA [Suspect]
     Active Substance: EMTRICITABINE\TENOFOVIR DISOPROXIL FUMARATE
     Dosage: UNK
     Route: 048
     Dates: start: 2011, end: 202101
  5. DESCOVY [Concomitant]
     Active Substance: EMTRICITABINE\TENOFOVIR ALAFENAMIDE FUMARATE
  6. COMBIVIR [Concomitant]
     Active Substance: LAMIVUDINE\ZIDOVUDINE
  7. ISENTRESS [Concomitant]
     Active Substance: RALTEGRAVIR POTASSIUM
  8. NORVIR [Concomitant]
     Active Substance: RITONAVIR
  9. REYATAZ [Concomitant]
     Active Substance: ATAZANAVIR SULFATE
  10. SELZENTRY [Concomitant]
     Active Substance: MARAVIROC
  11. ADVAIR HFA [Concomitant]
     Active Substance: FLUTICASONE PROPIONATE\SALMETEROL XINAFOATE
  12. ALBUTEROL SULFATE [Concomitant]
     Active Substance: ALBUTEROL SULFATE
  13. BACLOFEN [Concomitant]
     Active Substance: BACLOFEN
  14. FLUTICASONE [Concomitant]
     Active Substance: FLUTICASONE
  15. LASIX [Concomitant]
     Active Substance: FUROSEMIDE
  16. LORATADINE [Concomitant]
     Active Substance: LORATADINE
  17. MELOXICAM [Concomitant]
     Active Substance: MELOXICAM
  18. METFORMIN [Concomitant]
     Active Substance: METFORMIN HYDROCHLORIDE
  19. OMEPRAZOLE [Concomitant]
     Active Substance: OMEPRAZOLE
  20. PREMARIN [Concomitant]
     Active Substance: ESTROGENS, CONJUGATED
  21. SERTRALINE [Concomitant]
     Active Substance: SERTRALINE HYDROCHLORIDE
  22. TRAZODONE [Concomitant]
     Active Substance: TRAZODONE HYDROCHLORIDE
  23. CEFIXIME [Concomitant]
     Active Substance: CEFIXIME
  24. COMBIVENT [Concomitant]
     Active Substance: ALBUTEROL SULFATE\IPRATROPIUM BROMIDE
  25. LEXAPRO [Concomitant]
     Active Substance: ESCITALOPRAM OXALATE
  26. ACETAMINOPHEN\OXYCODONE HYDROCHLORIDE\OXYCODONE TEREPHTHALATE [Concomitant]
     Active Substance: ACETAMINOPHEN\OXYCODONE HYDROCHLORIDE\OXYCODONE TEREPHTHALATE
  27. AMBIEN [Concomitant]
     Active Substance: ZOLPIDEM TARTRATE
  28. RESTORIL [Concomitant]
     Active Substance: TEMAZEPAM
  29. ACTOS [Concomitant]
     Active Substance: PIOGLITAZONE HYDROCHLORIDE
  30. DICLOFENAC [Concomitant]
     Active Substance: DICLOFENAC
  31. ULTRAM [Concomitant]
     Active Substance: TRAMADOL HYDROCHLORIDE
  32. ESTROGENS [Concomitant]
     Active Substance: ESTROGENS
  33. DIOVAN [Concomitant]
     Active Substance: VALSARTAN
  34. FLECAINIDE [Concomitant]
     Active Substance: FLECAINIDE
  35. DILTIAZEM [Concomitant]
     Active Substance: DILTIAZEM
  36. DIGOXIN [Concomitant]
     Active Substance: DIGOXIN
  37. DETROL [Concomitant]
     Active Substance: TOLTERODINE TARTRATE
  38. COLCHICINE [Concomitant]
     Active Substance: COLCHICINE
  39. ALLOPURINOL [Concomitant]
     Active Substance: ALLOPURINOL
  40. GABAPENTIN [Concomitant]
     Active Substance: GABAPENTIN
  41. LYRICA [Concomitant]
     Active Substance: PREGABALIN
  42. NEURONTIN [Concomitant]
     Active Substance: GABAPENTIN
  43. ZANAFLEX [Concomitant]
     Active Substance: TIZANIDINE HYDROCHLORIDE
  44. XANAX [Concomitant]
     Active Substance: ALPRAZOLAM

REACTIONS (9)
  - Renal injury [Unknown]
  - Renal impairment [Not Recovered/Not Resolved]
  - Chronic kidney disease [Not Recovered/Not Resolved]
  - Proteinuria [Not Recovered/Not Resolved]
  - Pain [Unknown]
  - Emotional distress [Unknown]
  - Anxiety [Unknown]
  - Anhedonia [Unknown]
  - Blood creatinine increased [Unknown]

NARRATIVE: CASE EVENT DATE: 20101101
